FAERS Safety Report 7026701-7 (Version None)
Quarter: 2010Q4

REPORT INFORMATION
  Report Type: 
  Country: None (occurrence: None)
  Receive Date: 20101004
  Receipt Date: 20100921
  Transmission Date: 20110411
  Serious: Yes (Hospitalization)
  Sender: FDA-Public Use
  Company Number: BR-TEVA-249758ISR

PATIENT
  Sex: Female
  Weight: 2.28 kg

DRUGS (1)
  1. COPAXONE [Suspect]
     Route: 065

REACTIONS (1)
  - BRONCHOPNEUMONIA [None]
